FAERS Safety Report 6173989-0 (Version None)
Quarter: 2009Q2

REPORT INFORMATION
  Report Type: 
  Country: None (occurrence: None)
  Receive Date: 20090430
  Receipt Date: 20081201
  Transmission Date: 20091009
  Serious: No
  Sender: FDA-Public Use
  Company Number: US-ASTRAZENECA-2004UW12667

PATIENT
  Age: 74 Year
  Sex: Female
  Weight: 59 kg

DRUGS (16)
  1. NEXIUM [Suspect]
     Indication: GASTROOESOPHAGEAL REFLUX DISEASE
     Route: 048
     Dates: start: 20040504
  2. NEXIUM [Suspect]
     Indication: LARYNGITIS
     Route: 048
     Dates: start: 20040504
  3. NEXIUM [Suspect]
     Indication: HIATUS HERNIA
     Route: 048
     Dates: start: 20040504
  4. NEXIUM [Suspect]
     Route: 048
  5. NEXIUM [Suspect]
     Route: 048
  6. NEXIUM [Suspect]
     Route: 048
  7. ZANTAC [Concomitant]
     Dates: start: 20040501
  8. OCEAN NASAL SPRAY [Concomitant]
  9. VITAMINS [Concomitant]
  10. CALCIUM WITH VITAMIN D [Concomitant]
  11. ASPIRIN [Concomitant]
  12. MAALOX [Concomitant]
  13. ACTONEL [Concomitant]
  14. DIURETIC [Concomitant]
  15. CITRICAL WITH VITAMIN D [Concomitant]
  16. CENTRUM SILVER [Concomitant]

REACTIONS (8)
  - ERUCTATION [None]
  - FOAMING AT MOUTH [None]
  - GASTROOESOPHAGEAL REFLUX DISEASE [None]
  - GLOSSODYNIA [None]
  - OROPHARYNGEAL PAIN [None]
  - PAIN [None]
  - TONGUE DISCOLOURATION [None]
  - WEIGHT DECREASED [None]
